FAERS Safety Report 7198481-6 (Version None)
Quarter: 2010Q4

REPORT INFORMATION
  Report Type: 
  Country: None (occurrence: None)
  Receive Date: 20101213
  Receipt Date: 20101207
  Transmission Date: 20110411
  Serious: Yes (Hospitalization, Other)
  Sender: FDA-Public Use
  Company Number: 20109464

PATIENT
  Age: 57 Year
  Sex: Male

DRUGS (3)
  1. BACLOFEN [Suspect]
     Indication: MUSCLE SPASTICITY
     Dosage: MCG, DAILY, INTRATHECAL
     Route: 037
  2. SEASONAL FLU VACCINE [Concomitant]
  3. NEW INFLUENZA VACCINE [Concomitant]

REACTIONS (5)
  - C-REACTIVE PROTEIN INCREASED [None]
  - CALCULUS URINARY [None]
  - HYDRONEPHROSIS [None]
  - MUSCLE SPASTICITY [None]
  - WHITE BLOOD CELL COUNT INCREASED [None]
